FAERS Safety Report 18473353 (Version 1)
Quarter: 2020Q4

REPORT INFORMATION
  Report Type: Spontaneous
  Country: US (occurrence: US)
  Receive Date: 20201105
  Receipt Date: 20201105
  Transmission Date: 20210114
  Serious: No
  Sender: FDA-Public Use
  Company Number: None

PATIENT
  Age: 49 Year
  Sex: Female

DRUGS (1)
  1. COSENTYX [Suspect]
     Active Substance: SECUKINUMAB
     Dosage: OTHER FREQUENCY:PRN;?
     Route: 058
     Dates: start: 202003

REACTIONS (2)
  - COVID-19 [None]
  - Treatment noncompliance [None]

NARRATIVE: CASE EVENT DATE: 20200514
